FAERS Safety Report 15853454 (Version 1)
Quarter: 2019Q1

REPORT INFORMATION
  Report Type: Spontaneous
  Country: US (occurrence: US)
  Receive Date: 20190120
  Receipt Date: 20190120
  Transmission Date: 20190417
  Serious: Yes (Disabling)
  Sender: FDA-Public Use
  Company Number: None

PATIENT
  Age: 53 Year
  Sex: Male
  Weight: 126 kg

DRUGS (1)
  1. CIPROFLOXACIN HCL 500 MG TAB [Suspect]
     Active Substance: CIPROFLOXACIN HYDROCHLORIDE
     Indication: DIVERTICULITIS
     Dosage: ?          QUANTITY:20 TABLET(S);?
     Route: 048
     Dates: start: 20170327, end: 20170404

REACTIONS (5)
  - Tendon pain [None]
  - Depressed level of consciousness [None]
  - Abdominal discomfort [None]
  - Depression [None]
  - Anxiety [None]

NARRATIVE: CASE EVENT DATE: 20170404
